FAERS Safety Report 18683662 (Version 16)
Quarter: 2025Q2

REPORT INFORMATION
  Report Type: Report from Study
  Country: DE (occurrence: DE)
  Receive Date: 20201230
  Receipt Date: 20250530
  Transmission Date: 20250716
  Serious: Yes (Hospitalization, Disabling, Other)
  Sender: TAKEDA
  Company Number: DE-SHIRE-DE202021656

PATIENT
  Age: 46 Year
  Sex: Female
  Weight: 40 kg

DRUGS (22)
  1. TEDUGLUTIDE [Suspect]
     Active Substance: TEDUGLUTIDE
     Indication: Short-bowel syndrome
     Dosage: 2.45 MILLIGRAM, QD
     Dates: start: 20170719, end: 20170720
  2. TEDUGLUTIDE [Suspect]
     Active Substance: TEDUGLUTIDE
     Dosage: 1.25 MILLIGRAM, QD
     Dates: start: 20170720, end: 201806
  3. TEDUGLUTIDE [Suspect]
     Active Substance: TEDUGLUTIDE
     Dosage: 2.4 MILLIGRAM, QD
     Dates: start: 201806, end: 201903
  4. TEDUGLUTIDE [Suspect]
     Active Substance: TEDUGLUTIDE
     Dosage: 2 MILLIGRAM, QD
     Dates: start: 201903, end: 20200806
  5. TORSEMIDE [Concomitant]
     Active Substance: TORSEMIDE
     Indication: Decreased ventricular preload
     Dosage: 2.50 MILLIGRAM, QD
     Dates: start: 201906
  6. DIHYDRALAZINE [Concomitant]
     Active Substance: DIHYDRALAZINE
     Indication: Hypertension
  7. CANDESARTAN [Concomitant]
     Active Substance: CANDESARTAN
     Indication: Hypertension
     Dosage: 16 MILLIGRAM, BID
     Dates: start: 201906
  8. VITAMIN D [Concomitant]
     Active Substance: VITAMIN D NOS
     Indication: Vitamin D deficiency
     Dosage: UNK UNK, 3/MONTH
     Dates: start: 201903
  9. SIMVASTATIN [Concomitant]
     Active Substance: SIMVASTATIN
     Indication: Cardiovascular event prophylaxis
     Dosage: 20 MILLIGRAM, QD
  10. ERGOCALCIFEROL\PHYTONADIONE\RETINOL\TOCOPHEROL [Concomitant]
     Active Substance: ERGOCALCIFEROL\PHYTONADIONE\RETINOL\TOCOPHEROL
     Indication: Vitamin supplementation
     Dosage: 10 MILLILITER, 4/WEEK
  11. EDOXABAN [Concomitant]
     Active Substance: EDOXABAN
     Indication: Anticoagulant therapy
     Dosage: 30 MILLIGRAM, QD
     Dates: start: 2017
  12. LEVOTHYROXINE SODIUM [Concomitant]
     Active Substance: LEVOTHYROXINE SODIUM
     Indication: Hypothyroidism
     Dosage: 200 MICROGRAM, TID
     Dates: start: 201906
  13. MESALAMINE [Concomitant]
     Active Substance: MESALAMINE
     Indication: Colitis ulcerative
     Dosage: 3 GRAM, QD
     Dates: start: 201903, end: 201907
  14. MESALAMINE [Concomitant]
     Active Substance: MESALAMINE
     Dosage: 1.5 GRAM, QD
     Dates: start: 201907
  15. Selenase [Concomitant]
     Dosage: 100 MICROGRAM, QD
     Dates: start: 20180701
  16. BISOPROLOL [Concomitant]
     Active Substance: BISOPROLOL
     Indication: Hypertension
     Dosage: 5 MILLIGRAM, BID
     Dates: start: 2017
  17. PROMETHAZINE [Concomitant]
     Active Substance: PROMETHAZINE HYDROCHLORIDE
  18. NITROGLYCERIN [Concomitant]
     Active Substance: NITROGLYCERIN
     Indication: Hypertension
  19. LOPERAMIDE [Concomitant]
     Active Substance: LOPERAMIDE
     Indication: Diarrhoea
  20. PANTOPRAZOLE [Concomitant]
     Active Substance: PANTOPRAZOLE
     Indication: Prophylaxis
     Dosage: 40 MILLIGRAM, BID
     Dates: start: 201907
  21. NITROGLYCERIN [Concomitant]
     Active Substance: NITROGLYCERIN
  22. FOLIC ACID [Concomitant]
     Active Substance: FOLIC ACID
     Indication: Prophylaxis
     Dosage: 0.4 MILLIGRAM, BID
     Dates: start: 20190701, end: 20190801

REACTIONS (11)
  - Diarrhoea [Recovered/Resolved]
  - Intestinal ischaemia [Recovered/Resolved]
  - Arteriosclerosis [Not Recovered/Not Resolved]
  - Large intestinal ulcer [Recovered/Resolved]
  - Syncope [Recovered/Resolved]
  - Gastritis [Recovered/Resolved]
  - Malnutrition [Not Recovered/Not Resolved]
  - Fall [Recovered/Resolved]
  - Head injury [Recovered/Resolved]
  - Hypophosphataemia [Recovered/Resolved]
  - Kidney malrotation [Not Recovered/Not Resolved]

NARRATIVE: CASE EVENT DATE: 20190703
